FAERS Safety Report 15325752 (Version 2)
Quarter: 2018Q3

REPORT INFORMATION
  Report Type: Report from Study
  Country: BR (occurrence: BR)
  Receive Date: 20180828
  Receipt Date: 20180914
  Transmission Date: 20181010
  Serious: Yes (Other)
  Sender: FDA-Public Use
  Company Number: BR-SA-2018SA230169

PATIENT
  Age: 47 Year
  Sex: Female
  Weight: 45 kg

DRUGS (2)
  1. LARONIDASE [Suspect]
     Active Substance: LARONIDASE
     Dosage: 20 DF (VIALS); QOW
     Route: 041
     Dates: start: 20091020
  2. LARONIDASE [Suspect]
     Active Substance: LARONIDASE
     Indication: MUCOPOLYSACCHARIDOSIS
     Dosage: 20 DF (VIALS); QOW
     Route: 041
     Dates: start: 20161010

REACTIONS (12)
  - Influenza [Recovering/Resolving]
  - Discomfort [Unknown]
  - Haematemesis [Recovering/Resolving]
  - Pruritus generalised [Recovering/Resolving]
  - Eating disorder [Recovering/Resolving]
  - Asthenia [Recovering/Resolving]
  - Renal pain [Recovering/Resolving]
  - Dizziness [Recovering/Resolving]
  - Malaise [Recovering/Resolving]
  - Abdominal pain [Recovering/Resolving]
  - Glaucoma [Unknown]
  - Renal disorder [Unknown]

NARRATIVE: CASE EVENT DATE: 20180724
